FAERS Safety Report 11088155 (Version 1)
Quarter: 2015Q2

REPORT INFORMATION
  Report Type: Spontaneous
  Country: US (occurrence: None)
  Receive Date: 20150501
  Receipt Date: 20150501
  Transmission Date: 20150821
  Serious: Yes (Other)
  Sender: FDA-Public Use
  Company Number: None

PATIENT
  Age: 49 Year
  Sex: Female
  Weight: 63.5 kg

DRUGS (2)
  1. EFFEXOR XR [Suspect]
     Active Substance: VENLAFAXINE HYDROCHLORIDE
     Indication: ANXIETY
     Dates: start: 20150201, end: 20150331
  2. EFFEXOR XR [Suspect]
     Active Substance: VENLAFAXINE HYDROCHLORIDE
     Indication: DEPRESSION
     Dates: start: 20150201, end: 20150331

REACTIONS (8)
  - Depression [None]
  - Activities of daily living impaired [None]
  - Nightmare [None]
  - Product quality issue [None]
  - Product substitution issue [None]
  - Insomnia [None]
  - Panic reaction [None]
  - Aphasia [None]

NARRATIVE: CASE EVENT DATE: 20150323
